FAERS Safety Report 4451528-X (Version None)
Quarter: 2004Q3

REPORT INFORMATION
  Report Type: 
  Country: None (occurrence: None)
  Receive Date: 20040915
  Receipt Date: 20040907
  Transmission Date: 20050211
  Serious: Yes (Other)
  Sender: FDA-Public Use
  Company Number: 2004232282US

PATIENT
  Sex: Female

DRUGS (4)
  1. PROVERA [Suspect]
     Dates: start: 19950501, end: 19970801
  2. PREMARIN [Suspect]
     Dates: start: 19950401, end: 19950801
  3. PREMPRO [Suspect]
     Dates: start: 19971201, end: 20021001
  4. ESTRACE [Suspect]
     Dates: start: 19950801, end: 19970801

REACTIONS (1)
  - BREAST CANCER FEMALE [None]
